FAERS Safety Report 9322490 (Version 1)
Quarter: 2013Q2

REPORT INFORMATION
  Report Type: Spontaneous
  Country: JP (occurrence: JP)
  Receive Date: 20130531
  Receipt Date: 20130531
  Transmission Date: 20140414
  Serious: Yes (Hospitalization)
  Sender: FDA-Public Use
  Company Number: PHHY2013JP053063

PATIENT
  Age: 37 Year
  Sex: Male

DRUGS (3)
  1. PREDNISOLONE [Suspect]
     Dosage: 55 MG/KG PER DAY, TOTAL DOSE
  2. PREDNISOLONE [Suspect]
     Dosage: 5 MG, EVERY 2 WEEKS
  3. ANTIBIOTICS [Concomitant]

REACTIONS (2)
  - Lung cyst [Recovering/Resolving]
  - Pneumothorax [Recovering/Resolving]
